FAERS Safety Report 7415900-8 (Version None)
Quarter: 2011Q2

REPORT INFORMATION
  Report Type: 
  Country: None (occurrence: None)
  Receive Date: 20110414
  Receipt Date: 20110411
  Transmission Date: 20111010
  Serious: Yes (Hospitalization, Other)
  Sender: FDA-Public Use
  Company Number: US-PFIZER INC-2010081098

PATIENT
  Sex: Female

DRUGS (2)
  1. MICRONOR [Concomitant]
     Indication: CONTRACEPTION
     Dosage: UNK
     Dates: start: 20020101
  2. CHANTIX [Suspect]
     Indication: SMOKING CESSATION THERAPY
     Dosage: 0.5MG/1MG
     Dates: start: 20090403, end: 20090601

REACTIONS (7)
  - DEPRESSION [None]
  - ANXIETY [None]
  - EMOTIONAL DISTRESS [None]
  - AGGRESSION [None]
  - MENTAL DISORDER [None]
  - HALLUCINATION [None]
  - ABNORMAL BEHAVIOUR [None]
